FAERS Safety Report 4359740-5 (Version None)
Quarter: 2004Q2

REPORT INFORMATION
  Report Type: 
  Country: None (occurrence: None)
  Receive Date: 20040512
  Receipt Date: 20040426
  Transmission Date: 20050107
  Serious: Yes (Life-Threatening)
  Sender: FDA-Public Use
  Company Number: DSA_23727_2003

PATIENT
  Age: 9 Year
  Sex: Female
  Weight: 30.0009 kg

DRUGS (14)
  1. ENALAPRIL MALEATE [Suspect]
     Indication: VASODILATATION
     Dosage: 0.5 MG BID PO
     Route: 048
     Dates: start: 20031129, end: 20031201
  2. ENALAPRIL MALEATE [Suspect]
     Dosage: 0.13 MG Q DAY PO
     Route: 048
     Dates: start: 20040215, end: 20040215
  3. ENALAPRIL MALEATE [Suspect]
     Dosage: 0.25 MG DAILY PO
     Route: 048
     Dates: start: 20040216, end: 20040229
  4. ENALAPRIL MALEATE [Suspect]
     Dosage: 0.2 MG BID PO
     Route: 048
     Dates: start: 20040301
  5. DOPAMINE HYDROCHLORIDE [Concomitant]
  6. DOBUTAMINE HCL [Concomitant]
  7. MILRINONE [Concomitant]
  8. FUROSEMIDE [Concomitant]
  9. CARPERITIDE [Concomitant]
  10. MIDAZOLAM HCL [Concomitant]
  11. MORPHINE HYDROCHLORIDE [Concomitant]
  12. SPIRONOLACTONE [Concomitant]
  13. DIGOXIN [Concomitant]
  14. ARTIFICIAL VENTILATION [Concomitant]

REACTIONS (16)
  - ALANINE AMINOTRANSFERASE INCREASED [None]
  - ASPARTATE AMINOTRANSFERASE INCREASED [None]
  - BLOOD CHLORIDE DECREASED [None]
  - BLOOD LACTATE DEHYDROGENASE INCREASED [None]
  - BLOOD PRESSURE DECREASED [None]
  - BLOOD SODIUM DECREASED [None]
  - HAEMATOCRIT DECREASED [None]
  - HAEMOGLOBIN DECREASED [None]
  - HEART RATE INCREASED [None]
  - HYPERKALAEMIA [None]
  - OLIGURIA [None]
  - PLATELET COUNT DECREASED [None]
  - PROTEIN TOTAL DECREASED [None]
  - RED BLOOD CELL COUNT DECREASED [None]
  - RENAL FAILURE ACUTE [None]
  - WHITE BLOOD CELL COUNT INCREASED [None]
